FAERS Safety Report 7806545-6 (Version None)
Quarter: 2011Q4

REPORT INFORMATION
  Report Type: 
  Country: None (occurrence: None)
  Receive Date: 20111011
  Receipt Date: 20110926
  Transmission Date: 20120403
  Serious: Yes (Other)
  Sender: FDA-Public Use
  Company Number: ES-TYCO HEALTHCARE/MALLINCKRODT-T201101966

PATIENT
  Age: 78 Year
  Sex: Female

DRUGS (2)
  1. EXALGO [Suspect]
     Indication: BACK PAIN
     Dosage: 24 MG, BID
     Route: 048
     Dates: end: 20110901
  2. EXALGO [Suspect]
     Dosage: 32 MG, BID
     Route: 048
     Dates: start: 20110901, end: 20110904

REACTIONS (5)
  - HYPONATRAEMIA [None]
  - AGITATION [None]
  - HYPOCALCAEMIA [None]
  - CONFUSIONAL STATE [None]
  - HYPOKALAEMIA [None]
